FAERS Safety Report 22058621 (Version 1)
Quarter: 2023Q1

REPORT INFORMATION
  Report Type: Spontaneous
  Country: US (occurrence: US)
  Receive Date: 20230303
  Receipt Date: 20230303
  Transmission Date: 20230417
  Serious: No
  Sender: FDA-Public Use
  Company Number: US-GLAXOSMITHKLINE-USCH2023009113

PATIENT

DRUGS (2)
  1. ABREVA [Suspect]
     Active Substance: DOCOSANOL
     Indication: Herpes zoster
     Dosage: UNK
  2. ABREVA [Suspect]
     Active Substance: DOCOSANOL
     Indication: Oral herpes

REACTIONS (1)
  - Wrong technique in product usage process [Unknown]
